FAERS Safety Report 5238155-1 (Version None)
Quarter: 2007Q1

REPORT INFORMATION
  Report Type: 
  Country: None (occurrence: None)
  Receive Date: 20070215
  Receipt Date: 20070206
  Transmission Date: 20070707
  Serious: Yes (Hospitalization)
  Sender: FDA-Public Use
  Company Number: DE-JNJFOC-20070107254

PATIENT
  Sex: Female

DRUGS (3)
  1. RISPERDAL [Suspect]
     Indication: RESTLESSNESS
     Route: 048
  2. DIPIPERON [Concomitant]
     Indication: RESTLESSNESS
     Route: 048
  3. ZOPICLON [Concomitant]
     Indication: SLEEP DISORDER
     Route: 048

REACTIONS (2)
  - HEMIANOPIA [None]
  - SEDATION [None]
